FAERS Safety Report 8482135-X (Version None)
Quarter: 2012Q3

REPORT INFORMATION
  Report Type: 
  Country: None (occurrence: None)
  Receive Date: 20120702
  Receipt Date: 20120625
  Transmission Date: 20120928
  Serious: Yes (Other)
  Sender: FDA-Public Use
  Company Number: FR-PFIZER INC-2012152968

PATIENT
  Age: 37 Year
  Sex: Male
  Weight: 75 kg

DRUGS (3)
  1. PREDNISONE TAB [Concomitant]
  2. ATGAM [Suspect]
     Dosage: 40 MG/KG, UNK
     Route: 042
     Dates: start: 20111118, end: 20111121
  3. CICLOSPORIN [Concomitant]
     Dosage: 175 MG, 1X/DAY

REACTIONS (3)
  - ROTAVIRUS INFECTION [None]
  - CLOSTRIDIUM TEST POSITIVE [None]
  - CYSTITIS KLEBSIELLA [None]
